FAERS Safety Report 18414733 (Version 1)
Quarter: 2020Q4

REPORT INFORMATION
  Report Type: Spontaneous
  Country: US (occurrence: US)
  Receive Date: 20201021
  Receipt Date: 20201021
  Transmission Date: 20210114
  Serious: No
  Sender: FDA-Public Use
  Company Number: None

PATIENT
  Age: 86 Year
  Sex: Male
  Weight: 89.81 kg

DRUGS (11)
  1. METOPROLOL. [Concomitant]
     Active Substance: METOPROLOL
  2. AZITHROMYCIN ANHYDROUS. [Concomitant]
     Active Substance: AZITHROMYCIN ANHYDROUS
  3. LOVENOX [Concomitant]
     Active Substance: ENOXAPARIN SODIUM
  4. REMDESIVIR 100MG/250ML NORM. SALINE [Suspect]
     Active Substance: REMDESIVIR
     Indication: COVID-19
     Dates: end: 20201001
  5. PANTOPRAZOLE [Concomitant]
     Active Substance: PANTOPRAZOLE
  6. AMLODIPINE [Concomitant]
     Active Substance: AMLODIPINE BESYLATE
  7. TAMULOSIN [Concomitant]
     Active Substance: TAMSULOSIN
  8. ASCORBIC ACID. [Concomitant]
     Active Substance: ASCORBIC ACID
  9. DEXAMETHASONE. [Concomitant]
     Active Substance: DEXAMETHASONE
  10. CEFTRIAXONE. [Concomitant]
     Active Substance: CEFTRIAXONE
  11. VITAMIN D3 [Concomitant]
     Active Substance: CHOLECALCIFEROL

REACTIONS (4)
  - Infusion site induration [None]
  - Infusion site erythema [None]
  - Infusion site discomfort [None]
  - Infusion related reaction [None]

NARRATIVE: CASE EVENT DATE: 20201001
